FAERS Safety Report 9726294 (Version 1)
Quarter: 2013Q4

REPORT INFORMATION
  Report Type: Spontaneous
  Country: US (occurrence: None)
  Receive Date: 20131202
  Receipt Date: 20131202
  Transmission Date: 20140711
  Serious: Yes (Hospitalization)
  Sender: FDA-Public Use
  Company Number: None

PATIENT
  Age: 58 Year
  Sex: Male
  Weight: 77 kg

DRUGS (2)
  1. IRINOTECAN [Suspect]
     Dosage: 65 MG/M2 IV OVER 90 MINS D1 8Q 21 DAYS
  2. DOCETAXEL (TAXOTERE) [Suspect]

REACTIONS (8)
  - Diarrhoea [None]
  - Nausea [None]
  - Vomiting [None]
  - Intestinal dilatation [None]
  - Sepsis [None]
  - Tachycardia [None]
  - Febrile neutropenia [None]
  - Blood sodium decreased [None]
